FAERS Safety Report 4703082-2 (Version None)
Quarter: 2005Q2

REPORT INFORMATION
  Report Type: 
  Country: None (occurrence: None)
  Receive Date: 20050629
  Receipt Date: 20050627
  Transmission Date: 20051028
  Serious: Yes (Hospitalization)
  Sender: FDA-Public Use
  Company Number: US-BRISTOL-MYERS SQUIBB COMPANY-13016423

PATIENT
  Age: 65 Year
  Sex: Female

DRUGS (9)
  1. GLUCOPHAGE [Suspect]
     Indication: DIABETES MELLITUS
  2. LANTUS [Concomitant]
     Indication: DIABETES MELLITUS
     Dosage: DOSAGE FORM = UNITS
  3. BENICAR [Concomitant]
  4. DILTIAZEM HCL [Concomitant]
  5. SYNTHROID [Concomitant]
  6. LASIX [Concomitant]
  7. SYMBYAX [Concomitant]
  8. LORAZEPAM [Concomitant]
  9. GLYBURIDE [Concomitant]

REACTIONS (1)
  - NEPHROLITHIASIS [None]
